FAERS Safety Report 6982075-9 (Version None)
Quarter: 2010Q3

REPORT INFORMATION
  Report Type: 
  Country: None (occurrence: None)
  Receive Date: 20100909
  Receipt Date: 20100824
  Transmission Date: 20110219
  Serious: Yes (Other)
  Sender: FDA-Public Use
  Company Number: FKO201000355

PATIENT
  Age: 82 Year
  Sex: Male

DRUGS (1)
  1. EPIRUBICIN [Suspect]
     Indication: BLADDER CANCER
     Dosage: INTRAVESICAL
     Route: 043

REACTIONS (5)
  - ABDOMINAL DISTENSION [None]
  - BLADDER PERFORATION [None]
  - CELLULITIS [None]
  - MALAISE [None]
  - PYREXIA [None]
